FAERS Safety Report 10016107 (Version 1)
Quarter: 2014Q1

REPORT INFORMATION
  Report Type: Spontaneous
  Country: PT (occurrence: PT)
  Receive Date: 20140317
  Receipt Date: 20140317
  Transmission Date: 20141002
  Serious: Yes (Disabling)
  Sender: FDA-Public Use
  Company Number: PT-ACTAVIS-2014-04555

PATIENT
  Age: 38 Year
  Sex: Female
  Weight: 71 kg

DRUGS (6)
  1. PACLITAXEL ACTAVIS [Suspect]
     Indication: CERVIX CARCINOMA RECURRENT
     Dosage: 175 MG/M2, AT EVERY 21 DAYS
     Route: 042
     Dates: start: 20140218, end: 20140218
  2. CARBOPLATINA [Concomitant]
     Indication: CERVIX CARCINOMA RECURRENT
     Dosage: 660 MG, AT EVEREY 21 DAYS; ADMINISTERED AFTER COMPLETING THE ADMINISTRATION OF PACLITAXEL
     Route: 042
     Dates: start: 20140218, end: 20140218
  3. CLEMASTINE [Concomitant]
     Indication: ALLERGY PROPHYLAXIS
     Dosage: 2 MG, AT EVERY 21 DAYS; PREMEDICATION
     Route: 042
     Dates: start: 20140218, end: 20140218
  4. ONDANSETROM [Concomitant]
     Indication: PROPHYLAXIS OF NAUSEA AND VOMITING
     Dosage: 8 MG, AT EVERY 21 DAYS; PREMEDICATION
     Route: 042
     Dates: start: 20140218, end: 20140218
  5. DEXAMETASONA                       /00016001/ [Concomitant]
     Indication: ALLERGY PROPHYLAXIS
     Dosage: 20 MG, AT EVERY 21 DAYS; PREMEDICATION
     Route: 042
     Dates: start: 20140218, end: 20140218
  6. RANITIDINA [Concomitant]
     Indication: PROPHYLAXIS AGAINST GASTROINTESTINAL ULCER
     Dosage: 50 MG, AT EVERY 21 DAYS; PREMEDICATION
     Route: 042
     Dates: start: 20140218, end: 20140218

REACTIONS (3)
  - Abdominal pain [Recovered/Resolved]
  - Burning sensation [Recovered/Resolved]
  - Pelvic pain [Recovered/Resolved]
